FAERS Safety Report 13748986 (Version 1)
Quarter: 2017Q3

REPORT INFORMATION
  Report Type: Spontaneous
  Country: US (occurrence: US)
  Receive Date: 20170712
  Receipt Date: 20170712
  Transmission Date: 20171127
  Serious: Yes (Other)
  Sender: FDA-Public Use
  Company Number: None

PATIENT
  Age: 66 Year
  Sex: Female
  Weight: 57.15 kg

DRUGS (8)
  1. T3 [Concomitant]
     Active Substance: LIOTHYRONINE SODIUM
  2. VITAMIN C [Concomitant]
     Active Substance: ASCORBIC ACID
  3. BAREMINERALS FAIRLY LIGHT MATTE FAIRLY LIGHT MATTE [Suspect]
     Active Substance: TITANIUM DIOXIDE\ZINC OXIDE
     Indication: THERAPEUTIC SKIN CARE TOPICAL
     Route: 061
     Dates: start: 20021220, end: 20161220
  4. BIO-IDENTICAL HORMONE CREAM [Concomitant]
  5. PHOSPHATIDYL CHOLINE [Concomitant]
     Active Substance: LECITHIN
  6. PROBIOTICS [Concomitant]
     Active Substance: PROBIOTICS NOS
  7. MAGNESIUM [Concomitant]
     Active Substance: MAGNESIUM
  8. KRILL OIL [Concomitant]
     Active Substance: DIETARY SUPPLEMENT

REACTIONS (1)
  - Hair metal test abnormal [None]

NARRATIVE: CASE EVENT DATE: 20161220
